FAERS Safety Report 5405338-7 (Version None)
Quarter: 2007Q3

REPORT INFORMATION
  Report Type: 
  Country: None (occurrence: None)
  Receive Date: 20070803
  Receipt Date: 20070726
  Transmission Date: 20080115
  Serious: Yes (Other)
  Sender: FDA-Public Use
  Company Number: CA-ELI_LILLY_AND_COMPANY-CA200707006516

PATIENT
  Age: 61 Year
  Sex: Female

DRUGS (3)
  1. FORTEO [Suspect]
     Indication: OSTEOPOROSIS
     Dosage: 20 UG, DAILY (1/D)
     Route: 058
     Dates: start: 20070628, end: 20070718
  2. CALCIUM CHLORIDE [Concomitant]
  3. VITAMIN D [Concomitant]

REACTIONS (1)
  - LYMPHOPLASMACYTOID LYMPHOMA/IMMUNOCYTOMA [None]
